FAERS Safety Report 7126403-2 (Version None)
Quarter: 2010Q4

REPORT INFORMATION
  Report Type: 
  Country: None (occurrence: None)
  Receive Date: 20101129
  Receipt Date: 20101117
  Transmission Date: 20110411
  Serious: Yes (Other)
  Sender: FDA-Public Use
  Company Number: GB-PFIZER INC-2010151487

PATIENT
  Sex: Male
  Weight: 70 kg

DRUGS (4)
  1. PREGABALIN [Suspect]
     Indication: TRIGEMINAL NEURALGIA
     Dosage: 75 MG, 2X/DAY
  2. PRAVASTATIN [Interacting]
     Indication: ANGINA PECTORIS
     Dosage: UNK
     Dates: start: 20101022, end: 20101103
  3. ACECYLSALICYLIC ACID [Concomitant]
     Indication: ANGINA PECTORIS
     Dosage: 75 MG, 1X/DAY
  4. ATENOLOL [Concomitant]
     Indication: ANGINA PECTORIS
     Dosage: 25 MG, 1X/DAY

REACTIONS (3)
  - CONFUSIONAL STATE [None]
  - DRUG INTERACTION [None]
  - SOMNOLENCE [None]
